FAERS Safety Report 18600474 (Version 1)
Quarter: 2020Q4

REPORT INFORMATION
  Report Type: Spontaneous
  Country: CN (occurrence: CN)
  Receive Date: 20201210
  Receipt Date: 20201210
  Transmission Date: 20210114
  Serious: Yes (Other)
  Sender: FDA-Public Use
  Company Number: CN-PFIZER INC-2020481923

PATIENT
  Age: 82 Year
  Sex: Female

DRUGS (1)
  1. PIPERACILLIN/TAZOBACTAM [Suspect]
     Active Substance: PIPERACILLIN SODIUM\TAZOBACTAM SODIUM
     Indication: SYMPTOMATIC TREATMENT
     Dosage: 4.5 G, 1X/DAY
     Route: 041
     Dates: start: 20201101, end: 20201111

REACTIONS (4)
  - Chills [Recovering/Resolving]
  - Disease progression [Recovering/Resolving]
  - Hyperpyrexia [Recovering/Resolving]
  - Pneumonia bacterial [Recovering/Resolving]

NARRATIVE: CASE EVENT DATE: 20201111
